FAERS Safety Report 4280327-7 (Version None)
Quarter: 2004Q1

REPORT INFORMATION
  Report Type: 
  Country: None (occurrence: None)
  Receive Date: 20040126
  Receipt Date: 20040112
  Transmission Date: 20041129
  Serious: Yes (Other)
  Sender: FDA-Public Use
  Company Number: 2004002027

PATIENT
  Age: 74 Year
  Sex: Male
  Weight: 70.3075 kg

DRUGS (9)
  1. TIKOSYN [Suspect]
     Indication: ATRIAL FIBRILLATION
     Dosage: 500 MCG (BID), ORAL
     Route: 048
     Dates: start: 20030101
  2. ALL OTHER THERAPEUTIC PRODUCTS [Suspect]
     Indication: ILL-DEFINED DISORDER
     Dosage: NASAL
     Route: 045
     Dates: end: 20040101
  3. WARFARIN SODIUM [Concomitant]
  4. ISOSORBIDE MONONITRATE [Concomitant]
  5. LEVOTHYROXINE SODIUM [Concomitant]
  6. ATENOLOL [Concomitant]
  7. PRAVASTATIN SODIUM [Concomitant]
  8. RABEPRAZOLE (RABEPRAZOLE) [Concomitant]
  9. BUMETANIDE [Concomitant]

REACTIONS (14)
  - COUGH [None]
  - DIZZINESS [None]
  - DRUG HYPERSENSITIVITY [None]
  - DYSPNOEA [None]
  - DYSPNOEA EXERTIONAL [None]
  - EPISTAXIS [None]
  - FATIGUE [None]
  - HEADACHE [None]
  - INFLAMMATION [None]
  - INFLUENZA IMMUNISATION [None]
  - MEMORY IMPAIRMENT [None]
  - OXYGEN SATURATION DECREASED [None]
  - PRODUCTIVE COUGH [None]
  - RHINORRHOEA [None]
